FAERS Safety Report 6317530-8 (Version None)
Quarter: 2009Q3

REPORT INFORMATION
  Report Type: 
  Country: None (occurrence: None)
  Receive Date: 20090821
  Receipt Date: 20090810
  Transmission Date: 20100115
  Serious: Yes (Other)
  Sender: FDA-Public Use
  Company Number: GB-ROCHE-649825

PATIENT
  Age: 1 Year
  Sex: Male

DRUGS (3)
  1. TAMIFLU [Suspect]
     Indication: DRUG USE FOR UNKNOWN INDICATION
     Route: 065
     Dates: start: 20090728, end: 20090801
  2. ACETAMINOPHEN [Concomitant]
  3. NUROFEN [Concomitant]

REACTIONS (7)
  - ABDOMINAL PAIN [None]
  - DIARRHOEA [None]
  - FLATULENCE [None]
  - HALLUCINATION [None]
  - HEADACHE [None]
  - RASH GENERALISED [None]
  - VOMITING [None]
